FAERS Safety Report 4626050-8 (Version None)
Quarter: 2005Q2

REPORT INFORMATION
  Report Type: 
  Country: None (occurrence: None)
  Receive Date: 20050404
  Receipt Date: 20041125
  Transmission Date: 20051028
  Serious: Yes (Hospitalization)
  Sender: FDA-Public Use
  Company Number: FR-MERCK-0411FRA00103

PATIENT
  Age: 40 Year
  Sex: Male
  Weight: 55 kg

DRUGS (7)
  1. CRIXIVAN [Suspect]
     Indication: HIV INFECTION
     Route: 048
     Dates: start: 20040131, end: 20040216
  2. RITONAVIR [Concomitant]
     Indication: HIV INFECTION
     Route: 048
     Dates: start: 20040131, end: 20040216
  3. ZIDOVUDINE [Suspect]
     Indication: HIV INFECTION
     Route: 048
     Dates: start: 20040131, end: 20040216
  4. SULFAMETHOXAZOLE AND TRIMETHOPRIM [Concomitant]
     Indication: INFECTION PROPHYLAXIS
     Route: 048
  5. RISPERIDONE [Suspect]
     Indication: DEPRESSION
     Route: 048
     Dates: end: 20040211
  6. BUPRENORPHINE HYDROCHLORIDE [Concomitant]
     Indication: DRUG DEPENDENCE
     Route: 048
  7. FLUCONAZOLE [Concomitant]
     Indication: OESOPHAGEAL CANDIDIASIS
     Route: 048

REACTIONS (1)
  - PANCYTOPENIA [None]
